FAERS Safety Report 23064033 (Version 2)
Quarter: 2025Q3

REPORT INFORMATION
  Report Type: Spontaneous
  Country: EU (occurrence: EU)
  Receive Date: 20231013
  Receipt Date: 20250718
  Transmission Date: 20251020
  Serious: Yes (Death, Other)
  Sender: MYLAN
  Company Number: EU-PFIZER INC-2018106705

PATIENT
  Sex: Male

DRUGS (12)
  1. LYRICA [Suspect]
     Active Substance: PREGABALIN
     Indication: Product used for unknown indication
  2. LYRICA [Suspect]
     Active Substance: PREGABALIN
     Route: 065
  3. LYRICA [Suspect]
     Active Substance: PREGABALIN
     Route: 065
  4. LYRICA [Suspect]
     Active Substance: PREGABALIN
  5. OXYCODONE [Suspect]
     Active Substance: OXYCODONE
     Indication: Product used for unknown indication
  6. OXYCODONE [Suspect]
     Active Substance: OXYCODONE
     Route: 065
  7. OXYCODONE [Suspect]
     Active Substance: OXYCODONE
     Route: 065
  8. OXYCODONE [Suspect]
     Active Substance: OXYCODONE
  9. DOLOPHINE [Suspect]
     Active Substance: METHADONE HYDROCHLORIDE
     Indication: Product used for unknown indication
  10. DOLOPHINE [Suspect]
     Active Substance: METHADONE HYDROCHLORIDE
     Route: 065
  11. DOLOPHINE [Suspect]
     Active Substance: METHADONE HYDROCHLORIDE
     Route: 065
  12. DOLOPHINE [Suspect]
     Active Substance: METHADONE HYDROCHLORIDE

REACTIONS (5)
  - Cardiac arrest [Fatal]
  - Mental impairment [Unknown]
  - Abdominal distension [Unknown]
  - Weight increased [Unknown]
  - Drug dependence [Unknown]
